FAERS Safety Report 4929357-X (Version None)
Quarter: 2006Q1

REPORT INFORMATION
  Report Type: 
  Country: None (occurrence: None)
  Receive Date: 20060127
  Receipt Date: 20051025
  Transmission Date: 20060701
  Serious: Yes (Other)
  Sender: FDA-Public Use
  Company Number: 2005148702

PATIENT
  Age: 43 Year
  Sex: Female

DRUGS (5)
  1. LYRICA [Suspect]
     Indication: CYSTITIS INTERSTITIAL
     Dosage: 150 MG (75 MG, 2 IN 1 D), ORAL
     Route: 048
     Dates: start: 20050930
  2. ZOLOFT [Concomitant]
  3. TENORMIN [Concomitant]
  4. ZANAFLEX [Concomitant]
  5. ESTRATEST [Concomitant]

REACTIONS (2)
  - OEDEMA PERIPHERAL [None]
  - WEIGHT INCREASED [None]
